FAERS Safety Report 6856901-8 (Version None)
Quarter: 2010Q3

REPORT INFORMATION
  Report Type: 
  Country: None (occurrence: None)
  Receive Date: 20100714
  Receipt Date: 20100625
  Transmission Date: 20110219
  Serious: Yes (Hospitalization)
  Sender: FDA-Public Use
  Company Number: GP-10-06-0033

PATIENT
  Age: 18 Year
  Sex: Female

DRUGS (1)
  1. TOPIRAMATE (UNK, UNK) [Suspect]
     Indication: EPILEPSY
     Dosage: OVERDOSE 4000 MG PO
     Route: 048

REACTIONS (5)
  - METABOLIC ACIDOSIS [None]
  - MYDRIASIS [None]
  - OVERDOSE [None]
  - SOMNOLENCE [None]
  - VERTIGO [None]
